FAERS Safety Report 9797135 (Version 1)
Quarter: 2013Q4

REPORT INFORMATION
  Report Type: Spontaneous
  Country: US (occurrence: None)
  Receive Date: 20131230
  Receipt Date: 20131230
  Transmission Date: 20140711
  Serious: Yes (Death, Congenital Anomaly)
  Sender: FDA-Public Use
  Company Number: 2013HINOTH0328

PATIENT
  Sex: Male
  Weight: 2.8 kg

DRUGS (2)
  1. NEVIRAPINE [Suspect]
     Indication: ANTIRETROVIRAL THERAPY
     Dosage: 1 COURSE
  2. TRUVADA [Concomitant]

REACTIONS (2)
  - Spina bifida [None]
  - Foetal exposure during pregnancy [None]
